FAERS Safety Report 8472392-8 (Version None)
Quarter: 2012Q2

REPORT INFORMATION
  Report Type: 
  Country: None (occurrence: None)
  Receive Date: 20120627
  Receipt Date: 20120619
  Transmission Date: 20120825
  Serious: Yes (Hospitalization)
  Sender: FDA-Public Use
  Company Number: US-ACTELION-A-US2010-36137

PATIENT

DRUGS (3)
  1. NITROGLYCERIN [Concomitant]
  2. TRACLEER [Suspect]
     Indication: PULMONARY ARTERIAL HYPERTENSION
     Dosage: UNK
     Route: 048
     Dates: start: 20090720
  3. ASPIRIN [Concomitant]

REACTIONS (8)
  - PAIN [None]
  - RIB FRACTURE [None]
  - SYNCOPE [None]
  - TRANSFUSION [None]
  - FALL [None]
  - HAEMORRHAGE [None]
  - ANAEMIA [None]
  - HAEMOGLOBIN DECREASED [None]
